FAERS Safety Report 10086508 (Version 1)
Quarter: 2014Q2

REPORT INFORMATION
  Report Type: Spontaneous
  Country: US (occurrence: US)
  Receive Date: 20140418
  Receipt Date: 20140418
  Transmission Date: 20141212
  Serious: No
  Sender: FDA-Public Use
  Company Number: US-PFIZER INC-2014109394

PATIENT
  Age: 76 Year
  Sex: Male
  Weight: 129.25 kg

DRUGS (8)
  1. LYRICA [Suspect]
     Indication: NEUROPATHY PERIPHERAL
     Dosage: 75 MG, 2X/DAY
     Dates: start: 200903
  2. LYRICA [Suspect]
     Indication: DIABETIC NEUROPATHY
     Dosage: 75 MG, 3X/DAY
  3. LYRICA [Suspect]
     Dosage: 75 MG, 2X/DAY
  4. FISH OIL [Concomitant]
     Dosage: 2000 MG, DAILY
  5. NIASPAN [Concomitant]
     Dosage: 2000 MG, DAILY
  6. JANUMET [Concomitant]
     Dosage: [SITAGLIPTIN 50MG] /[METFORMIN 500 MG] TWO TIMES A DAY
  7. BUMETANIDE [Concomitant]
     Indication: DIURETIC THERAPY
     Dosage: 25 MG, DAILY
  8. VYTORIN [Concomitant]
     Indication: BLOOD CHOLESTEROL ABNORMAL
     Dosage: 10/80MG TABLET BY SPLITTING DAILY

REACTIONS (2)
  - Blood glucose increased [Not Recovered/Not Resolved]
  - Drug ineffective [Unknown]
